FAERS Safety Report 4367373-X (Version None)
Quarter: 2004Q2

REPORT INFORMATION
  Report Type: 
  Country: None (occurrence: None)
  Receive Date: 20040601
  Receipt Date: 20040520
  Transmission Date: 20050107
  Serious: Yes (Disabling, Other)
  Sender: FDA-Public Use
  Company Number: 200415444GDDC

PATIENT
  Age: 45 Year
  Sex: Male

DRUGS (11)
  1. ARAVA [Suspect]
     Indication: RHEUMATOID ARTHRITIS
     Route: 048
     Dates: start: 20031101
  2. VENLAFAXINE [Concomitant]
     Route: 048
  3. TRIMIPRAMINE [Concomitant]
     Route: 048
  4. SEVREDOL [Concomitant]
  5. DIHYDROCODEINE [Concomitant]
     Route: 048
  6. DICLOFENAC [Concomitant]
     Route: 048
  7. MORPHINE SULFATE [Concomitant]
     Route: 048
  8. LANSOPRAZOLE [Concomitant]
     Route: 048
  9. UBRETID [Concomitant]
  10. INSULIN [Concomitant]
     Dosage: DOSE: UNK
  11. GLUCOSAMINE [Concomitant]
     Dosage: DOSE: UNK

REACTIONS (1)
  - MYOCARDIAL INFARCTION [None]
